FAERS Safety Report 13940259 (Version 1)
Quarter: 2017Q3

REPORT INFORMATION
  Report Type: Spontaneous
  Country: US (occurrence: US)
  Receive Date: 20170906
  Receipt Date: 20170906
  Transmission Date: 20171127
  Serious: No
  Sender: FDA-Public Use
  Company Number: US-ASTRAZENECA-2017SE88274

PATIENT
  Sex: Female

DRUGS (5)
  1. KOMBIGLYZE XR [Suspect]
     Active Substance: METFORMIN HYDROCHLORIDE\SAXAGLIPTIN HYDROCHLORIDE
     Indication: BLOOD GLUCOSE INCREASED
     Dosage: 2.5/1000 MG TWICE DAILY, ONCE IN THE MORNING AND ONCE IN THE EVENING
     Route: 048
     Dates: start: 2016
  2. ONGLYZA [Suspect]
     Active Substance: SAXAGLIPTIN HYDROCHLORIDE
     Indication: BLOOD GLUCOSE INCREASED
     Route: 048
     Dates: start: 201604, end: 20170814
  3. ONGLYZA [Suspect]
     Active Substance: SAXAGLIPTIN HYDROCHLORIDE
     Indication: TYPE 2 DIABETES MELLITUS
     Route: 048
     Dates: start: 201604, end: 20170814
  4. JANUVIA [Concomitant]
     Active Substance: SITAGLIPTIN PHOSPHATE
  5. KOMBIGLYZE XR [Suspect]
     Active Substance: METFORMIN HYDROCHLORIDE\SAXAGLIPTIN HYDROCHLORIDE
     Indication: TYPE 2 DIABETES MELLITUS
     Dosage: 2.5/1000 MG TWICE DAILY, ONCE IN THE MORNING AND ONCE IN THE EVENING
     Route: 048
     Dates: start: 2016

REACTIONS (6)
  - Burning sensation [Recovered/Resolved]
  - Off label use [Unknown]
  - Heart rate increased [Recovered/Resolved]
  - Wheezing [Recovered/Resolved]
  - Erythema [Recovered/Resolved]
  - Blood pressure increased [Unknown]

NARRATIVE: CASE EVENT DATE: 201701
